FAERS Safety Report 4479543-0 (Version None)
Quarter: 2004Q4

REPORT INFORMATION
  Report Type: 
  Country: None (occurrence: None)
  Receive Date: 20041018
  Receipt Date: 20041004
  Transmission Date: 20050328
  Serious: Yes (Hospitalization)
  Sender: FDA-Public Use
  Company Number: 2004073372

PATIENT
  Age: 72 Year
  Sex: Male

DRUGS (5)
  1. SILDENAFIL (SILDENAFIL) [Suspect]
     Indication: ERECTILE DYSFUNCTION
     Dosage: 50 MG AS NECESSARY ORAL
     Route: 048
     Dates: start: 20040501
  2. CLOPIDOGREL BISULFATE [Concomitant]
  3. SINEMET [Concomitant]
  4. ZOLPIDEM TARTRATE [Concomitant]
  5. LEVODOPA [Concomitant]

REACTIONS (3)
  - CEREBROVASCULAR ACCIDENT [None]
  - DRUG INEFFECTIVE [None]
  - GRAND MAL CONVULSION [None]
